FAERS Safety Report 13810832 (Version 1)
Quarter: 2017Q3

REPORT INFORMATION
  Report Type: Spontaneous
  Country: US (occurrence: US)
  Receive Date: 20170728
  Receipt Date: 20170728
  Transmission Date: 20171127
  Serious: No
  Sender: FDA-Public Use
  Company Number: US-ROCHE-1290815

PATIENT
  Sex: Female

DRUGS (1)
  1. BONIVA [Suspect]
     Active Substance: IBANDRONATE SODIUM
     Indication: OSTEOPENIA
     Dosage: PATIENT RECEIVED BONIVA PILLS PRIOR TO 2008 AND INJECTIONS SINCE THEN
     Route: 042
     Dates: start: 2008

REACTIONS (1)
  - Femur fracture [Unknown]
